FAERS Safety Report 10704586 (Version 1)
Quarter: 2015Q1

REPORT INFORMATION
  Report Type: Spontaneous
  Country: US (occurrence: US)
  Receive Date: 20150112
  Receipt Date: 20150112
  Transmission Date: 20150721
  Serious: No
  Sender: FDA-Public Use
  Company Number: US-SHIRE-US201500021

PATIENT
  Sex: Male
  Weight: 74.83 kg

DRUGS (1)
  1. PENTASA [Suspect]
     Active Substance: MESALAMINE
     Indication: COLITIS
     Dosage: UNK, OTHER (1 BLUE PILL WHENEVER EXPERIENCE PRE-EXISTING PAIN, DISCOMFORT AND LOSS OF APPETITE)
     Route: 048
     Dates: start: 2014, end: 201412

REACTIONS (2)
  - Inappropriate schedule of drug administration [Recovered/Resolved]
  - No adverse event [Recovered/Resolved]

NARRATIVE: CASE EVENT DATE: 2014
